FAERS Safety Report 4307153-4 (Version None)
Quarter: 2004Q1

REPORT INFORMATION
  Report Type: 
  Country: None (occurrence: None)
  Receive Date: 20040225
  Receipt Date: 20040216
  Transmission Date: 20041129
  Serious: Yes (Other)
  Sender: FDA-Public Use
  Company Number: JP-JNJFOC-20040202732

PATIENT

DRUGS (3)
  1. RISPERDAL [Suspect]
     Dosage: ORAL
     Route: 048
  2. CARBAMAZEPINE [Suspect]
     Dosage: ORAL
     Route: 048
  3. ASPIRIN-DIALUMINATE (BUFFERIN) [Suspect]
     Dosage: ORAL
     Route: 048

REACTIONS (4)
  - LEUKOPENIA [None]
  - PYREXIA [None]
  - RASH [None]
  - THROMBOCYTOPENIA [None]
